FAERS Safety Report 7369372-2 (Version None)
Quarter: 2011Q1

REPORT INFORMATION
  Report Type: 
  Country: None (occurrence: None)
  Receive Date: 20110323
  Receipt Date: 20110317
  Transmission Date: 20110831
  Serious: Yes (Death)
  Sender: FDA-Public Use
  Company Number: US-ROCHE-766602

PATIENT
  Age: 29 Year
  Sex: Male

DRUGS (7)
  1. PRIMIDONE [Suspect]
     Dosage: ROUTE: INGESTION, ONGOING STATUS UNKNOWN AT THE TIME OF DEATH
     Route: 048
  2. ACETAMINOPHEN [Suspect]
     Dosage: DRUG: ACETAMINOPHEN/ HYDROCODONE, ROUTE: INGESTION, ONGOING STATUS UNKNOWN AT THE TIME OF DEATH
     Route: 048
  3. TIZANIDINE [Suspect]
     Dosage: ROUTE: INGESTION, ONGOING STATUS UNKNOWN AT THE TIME OF DEATH
     Route: 048
  4. CLONAZEPAM [Suspect]
     Dosage: ROUTE: INGESTION, ONGOING STATUS UNKNOWN AT THE TIME OF DEATH
     Route: 048
  5. LEVETIRACETAM [Suspect]
     Dosage: ROUTE: INGESTION, ONGOING STATUS UNKNOWN AT THE TIME OF DEATH
     Route: 048
  6. FENTANYL [Suspect]
     Dosage: ONGOING STATUS UNKNOWN AT THE TIME OF DEATH
     Route: 062
  7. VENLAFAXINE [Suspect]
     Dosage: ROUTE: INGESTION (EXTENDED RELEASE), ONGOING STATUS UNKNOWN AT THE TIME OF DEATH
     Route: 048

REACTIONS (3)
  - TOXICITY TO VARIOUS AGENTS [None]
  - CARDIAC ARREST [None]
  - RESPIRATORY ARREST [None]
